FAERS Safety Report 5479872-8 (Version None)
Quarter: 2007Q4

REPORT INFORMATION
  Report Type: 
  Country: None (occurrence: None)
  Receive Date: 20071008
  Receipt Date: 20071001
  Transmission Date: 20080405
  Serious: Yes (Life-Threatening, Other)
  Sender: FDA-Public Use
  Company Number: IT-ROXANE LABORATORIES, INC-2007-BP-22221RO

PATIENT
  Age: 59 Year
  Sex: Female

DRUGS (4)
  1. AZATHIOPRINE [Suspect]
     Indication: IMMUNOSUPPRESSION
     Dates: start: 19950101, end: 19990101
  2. CYCLOSPORINE [Suspect]
     Indication: IMMUNOSUPPRESSION
     Dates: start: 19950101, end: 20060101
  3. METHYLPREDNISOLONE [Suspect]
     Indication: IMMUNOSUPPRESSION
     Dates: start: 19950101
  4. MYCOPHENOLATE MOFETIL [Suspect]
     Indication: RENAL IMPAIRMENT
     Dates: start: 19990101, end: 20060101

REACTIONS (6)
  - CHRONIC ALLOGRAFT NEPHROPATHY [None]
  - COMPLICATIONS OF TRANSPLANTED KIDNEY [None]
  - GRAFT DYSFUNCTION [None]
  - PROTEINURIA [None]
  - SCEDOSPORIUM INFECTION [None]
  - TRANSPLANT REJECTION [None]
